FAERS Safety Report 21332968 (Version 1)
Quarter: 2022Q3

REPORT INFORMATION
  Report Type: Spontaneous
  Country: DE (occurrence: DE)
  Receive Date: 20220914
  Receipt Date: 20220914
  Transmission Date: 20221027
  Serious: Yes (Hospitalization, Other)
  Sender: FDA-Public Use
  Company Number: None

PATIENT
  Age: 62 Year
  Sex: Female

DRUGS (59)
  1. AZITHROMYCIN [Suspect]
     Active Substance: AZITHROMYCIN
     Indication: Product used for unknown indication
     Dosage: UNK (AZITHROMYCIN 1A PHARMA)
     Route: 065
     Dates: start: 201406, end: 2014
  2. CEFPODOXIME [Suspect]
     Active Substance: CEFPODOXIME
     Indication: Product used for unknown indication
     Dosage: UNK (CEFPO BASICS)
     Route: 065
     Dates: start: 201409, end: 2014
  3. CEFPODOXIME [Suspect]
     Active Substance: CEFPODOXIME
     Dosage: UNK (CEFPODOXIM 1 A PHARMA)
     Route: 065
     Dates: start: 201311, end: 2013
  4. CEFPODOXIME [Suspect]
     Active Substance: CEFPODOXIME
     Dosage: UNK (CEFPODOXIM HEXAL)
     Route: 065
     Dates: start: 201605, end: 2016
  5. CIPROFLOXACIN [Suspect]
     Active Substance: CIPROFLOXACIN
     Indication: Product used for unknown indication
     Dosage: UNK (CIPRO BASICS)
     Route: 065
     Dates: start: 201712, end: 2018
  6. CIPROFLOXACIN [Suspect]
     Active Substance: CIPROFLOXACIN
     Dosage: UNK (CIPROFLOXACIN AL)
     Route: 065
     Dates: start: 201606, end: 2018
  7. CIPROFLOXACIN [Suspect]
     Active Substance: CIPROFLOXACIN
     Dosage: UNK (CIPROFLOXACIN ARISTO)
     Route: 065
     Dates: start: 201511, end: 2015
  8. FLUCONAZOLE [Suspect]
     Active Substance: FLUCONAZOLE
     Indication: Product used for unknown indication
     Dosage: UNK (FLUCONAZOL PUREN)
     Route: 065
     Dates: start: 201805, end: 2018
  9. FOSFOMYCIN [Suspect]
     Active Substance: FOSFOMYCIN
     Indication: Product used for unknown indication
     Dosage: UNK (MONURIL)
     Route: 065
     Dates: start: 201210, end: 2012
  10. HYDROCORTISONE [Suspect]
     Active Substance: HYDROCORTISONE
     Indication: Product used for unknown indication
     Dosage: UNK (ALFASON CRELO)
     Route: 065
     Dates: start: 201406, end: 2014
  11. IBUPROFEN [Suspect]
     Active Substance: IBUPROFEN
     Indication: Product used for unknown indication
     Dosage: UNK (DOLGIT 600)
     Route: 065
     Dates: start: 201807, end: 2018
  12. IBUPROFEN [Suspect]
     Active Substance: IBUPROFEN
     Dosage: UNK (IBUFLAM LICHTENSTEIN)
     Route: 065
     Dates: start: 201205, end: 2018
  13. IBUPROFEN [Suspect]
     Active Substance: IBUPROFEN
     Dosage: UNK (IBU 1 A PHARMA)
     Route: 065
     Dates: start: 201404, end: 2018
  14. NEBIVOLOL [Suspect]
     Active Substance: NEBIVOLOL
     Indication: Product used for unknown indication
     Dosage: UNK (NEBIVOLOL)
     Route: 065
  15. NEBIVOLOL [Suspect]
     Active Substance: NEBIVOLOL
     Dosage: UNK (NEBIVOLOL ACTAVIS)
     Route: 065
     Dates: start: 201402, end: 2018
  16. PANTOPRAZOLE [Suspect]
     Active Substance: PANTOPRAZOLE
     Indication: Product used for unknown indication
     Dosage: UNK (PANTOPRAZOL PENSA)
     Route: 065
     Dates: start: 201705, end: 2018
  17. PANTOPRAZOLE [Suspect]
     Active Substance: PANTOPRAZOLE
     Dosage: UNK (PANTOPRAZOL)
     Route: 065
  18. VALSARTAN [Suspect]
     Active Substance: VALSARTAN
     Indication: Product used for unknown indication
     Dosage: UNK (VALSARTAN HEXAL)
     Route: 065
     Dates: start: 201705, end: 2017
  19. AMPHO-MORONAL [Suspect]
     Active Substance: AMPHOTERICIN B
     Indication: Product used for unknown indication
     Dosage: UNK (AMPHO-MORONAL)
     Route: 065
     Dates: start: 201804, end: 2018
  20. AMPICILLIN SODIUM [Suspect]
     Active Substance: AMPICILLIN SODIUM
     Indication: Product used for unknown indication
     Dosage: UNK (AMPICILLIN RATIOPHARM)
     Route: 065
     Dates: start: 201410, end: 2014
  21. HYGROTON [Suspect]
     Active Substance: CHLORTHALIDONE
     Indication: Product used for unknown indication
     Dosage: UNK (HYGROTON)
     Route: 065
     Dates: start: 201705, end: 2017
  22. CLINDAMYCIN [Suspect]
     Active Substance: CLINDAMYCIN
     Indication: Product used for unknown indication
     Dosage: UNK (CLINDA-SAAR)
     Route: 065
     Dates: start: 201308, end: 2013
  23. CLINDAMYCIN [Suspect]
     Active Substance: CLINDAMYCIN
     Dosage: UNK (CLINDAHEXAL)
     Route: 065
     Dates: start: 201210, end: 2012
  24. CLINDAMYCIN [Suspect]
     Active Substance: CLINDAMYCIN
     Dosage: UNK (CLINDAMYCIN AL)
     Route: 065
     Dates: start: 201503, end: 2015
  25. CLINDAMYCIN [Suspect]
     Active Substance: CLINDAMYCIN
     Dosage: UNK (CLINDASOL)
     Route: 065
     Dates: start: 201401, end: 2017
  26. CODEINE PHOSPHATE [Suspect]
     Active Substance: CODEINE PHOSPHATE
     Indication: Product used for unknown indication
     Dosage: UNK ( CODEINTROPFEN CT)
     Route: 065
     Dates: start: 201212, end: 2013
  27. COTRIMOXAZOLE [Suspect]
     Active Substance: SULFAMETHOXAZOLE\TRIMETHOPRIM
     Indication: Product used for unknown indication
     Dosage: UNK (COTRIM FORTE RATIOPHARM)
     Route: 065
     Dates: start: 201702, end: 2018
  28. COTRIMOXAZOLE [Suspect]
     Active Substance: SULFAMETHOXAZOLE\TRIMETHOPRIM
     Dosage: UNK (COTRIMOXAZOL AL FORTE)
     Route: 065
     Dates: start: 201410, end: 2014
  29. DOXAZOSIN [Suspect]
     Active Substance: DOXAZOSIN MESYLATE
     Indication: Product used for unknown indication
     Dosage: UNK (DOXAGAMMA)
     Route: 065
     Dates: start: 201705, end: 2017
  30. DOXAZOSIN [Suspect]
     Active Substance: DOXAZOSIN MESYLATE
     Dosage: UNK (DOXAZOSIN 2 COR - 1 A PHARMA?)
     Route: 065
     Dates: start: 201705, end: 2017
  31. DOXAZOSIN MESYLATE [Suspect]
     Active Substance: DOXAZOSIN MESYLATE
     Indication: Product used for unknown indication
     Dosage: UNK
     Route: 065
  32. DOXYCYCLINE [Suspect]
     Active Substance: DOXYCYCLINE
     Indication: Product used for unknown indication
     Dosage: UNK (DOXYCYCLIN 1-A PHARMA)
     Route: 065
     Dates: start: 201606, end: 2016
  33. FLUMETHASONE PIVALATE [Suspect]
     Active Substance: FLUMETHASONE PIVALATE
     Indication: Product used for unknown indication
     Dosage: UNK (FLUMETASONE PIVALATE)
     Route: 065
  34. HYDROCHLOROTHIAZIDE [Suspect]
     Active Substance: HYDROCHLOROTHIAZIDE
     Indication: Product used for unknown indication
     Dosage: UNK (HCT HEXAL)
     Route: 065
     Dates: start: 201706, end: 2017
  35. LERCANIDIPINE HYDROCHLORIDE [Suspect]
     Active Substance: LERCANIDIPINE HYDROCHLORIDE
     Indication: Product used for unknown indication
     Dosage: UNK
     Route: 065
     Dates: start: 201702, end: 2017
  36. LEVOTHYROXINE [Suspect]
     Active Substance: LEVOTHYROXINE
     Indication: Product used for unknown indication
     Dosage: UNK (EUTHYROX)
     Route: 065
     Dates: start: 201204, end: 2015
  37. LEVOTHYROXINE [Suspect]
     Active Substance: LEVOTHYROXINE
     Dosage: UNK (EFEROX)
     Route: 065
     Dates: start: 201212, end: 2013
  38. LEVOTHYROXINE [Suspect]
     Active Substance: LEVOTHYROXINE
     Dosage: UNK (L-THYROX HEXAL)
     Route: 065
     Dates: start: 201305, end: 2018
  39. MINOXIDIL [Suspect]
     Active Substance: MINOXIDIL
     Indication: Product used for unknown indication
     Dosage: UNK (LONOLOX)
     Route: 065
     Dates: start: 201707, end: 2017
  40. CLIOQUINOL\FLUMETHASONE [Suspect]
     Active Substance: CLIOQUINOL\FLUMETHASONE
     Indication: Product used for unknown indication
     Dosage: UNK (LOCACORTEN VIOFORM)
     Route: 065
  41. CLIOQUINOL\FLUMETHASONE PIVALATE [Suspect]
     Active Substance: CLIOQUINOL\FLUMETHASONE PIVALATE
     Indication: Product used for unknown indication
     Dosage: UNK (LOCAVCORTEN VIOFORM)
     Route: 065
     Dates: start: 201401, end: 2014
  42. METAMIZOLE [Suspect]
     Active Substance: METAMIZOLE
     Indication: Product used for unknown indication
     Dosage: UNK (NOVAMINSULFON)
     Route: 065
     Dates: start: 201706, end: 2017
  43. METAMIZOLE SODIUM [Suspect]
     Active Substance: METAMIZOLE SODIUM
     Indication: Product used for unknown indication
     Dosage: UNK
     Route: 065
  44. MOMETASONE [Suspect]
     Active Substance: MOMETASONE
     Indication: Product used for unknown indication
     Dosage: UNK
     Route: 045
     Dates: start: 201406, end: 2014
  45. NYSTATIN [Suspect]
     Active Substance: NYSTATIN
     Indication: Product used for unknown indication
     Dosage: UNK (MORONAL)
     Route: 065
     Dates: start: 201805, end: 2018
  46. PREDNISOLONE [Suspect]
     Active Substance: PREDNISOLONE
     Indication: Product used for unknown indication
     Dosage: UNK (DECORTIN H)
     Route: 065
     Dates: start: 201505, end: 2015
  47. PREDNISOLONE [Suspect]
     Active Substance: PREDNISOLONE
     Dosage: UNK (LINOLA H FETT N)
     Route: 065
     Dates: start: 201302, end: 2013
  48. PREDNISOLONE [Suspect]
     Active Substance: PREDNISOLONE
     Dosage: UNK (PREDNISOLONE)
     Route: 065
  49. RASILEZ [Suspect]
     Active Substance: ALISKIREN
     Indication: Product used for unknown indication
     Dosage: UNK
     Route: 065
     Dates: start: 201201, end: 2012
  50. ROXITHROMYCIN [Suspect]
     Active Substance: ROXITHROMYCIN
     Indication: Product used for unknown indication
     Dosage: UNK (ROXITHROMYCIN)
     Route: 065
  51. ROXITHROMYCIN [Suspect]
     Active Substance: ROXITHROMYCIN
     Dosage: UNK (ROXITHROMYCIN HEUMANN)
     Route: 065
     Dates: start: 201311, end: 2013
  52. SPIRONOLACTONE [Suspect]
     Active Substance: SPIRONOLACTONE
     Indication: Product used for unknown indication
     Dosage: UNK
     Route: 065
     Dates: start: 201702, end: 2017
  53. SULFAMETHOXAZOLE\TRIMETHOPRIM [Suspect]
     Active Substance: SULFAMETHOXAZOLE\TRIMETHOPRIM
     Indication: Product used for unknown indication
     Dosage: UNK
     Route: 065
     Dates: start: 201410
  54. SULFAMETHOXAZOLE\TRIMETHOPRIM [Suspect]
     Active Substance: SULFAMETHOXAZOLE\TRIMETHOPRIM
     Dosage: UNK
     Route: 065
     Dates: start: 201702
  55. HYDROCHLOROTHIAZIDE\VALSARTAN [Suspect]
     Active Substance: HYDROCHLOROTHIAZIDE\VALSARTAN
     Indication: Hypertension
     Dosage: UNK (VALSACOR COMP)
     Route: 065
     Dates: start: 201602
  56. HYDROCHLOROTHIAZIDE\VALSARTAN [Suspect]
     Active Substance: HYDROCHLOROTHIAZIDE\VALSARTAN
     Dosage: UNK (VALSARTAN COMP HEXAL)
     Route: 065
     Dates: start: 201205, end: 2017
  57. HYDROCHLOROTHIAZIDE\VALSARTAN [Suspect]
     Active Substance: HYDROCHLOROTHIAZIDE\VALSARTAN
     Dosage: UNK (VALSARTAN COMP RATIOPHARM)
     Route: 065
     Dates: start: 201201, end: 2012
  58. HYDROCHLOROTHIAZIDE\VALSARTAN [Suspect]
     Active Substance: HYDROCHLOROTHIAZIDE\VALSARTAN
     Dosage: UNK (VALSARTAN PLUS 1 A PHARMA)
     Route: 065
     Dates: start: 201204, end: 2012
  59. HYDROCHLOROTHIAZIDE\VALSARTAN [Suspect]
     Active Substance: HYDROCHLOROTHIAZIDE\VALSARTAN
     Dosage: UNK (VALSARTAN-COMP PUREN)
     Route: 065
     Dates: start: 201801, end: 2018

REACTIONS (1)
  - Bladder transitional cell carcinoma [Recovered/Resolved]

NARRATIVE: CASE EVENT DATE: 20180301
